FAERS Safety Report 13533316 (Version 5)
Quarter: 2017Q3

REPORT INFORMATION
  Report Type: Spontaneous
  Country: US (occurrence: US)
  Receive Date: 20170510
  Receipt Date: 20170721
  Transmission Date: 20171127
  Serious: Yes (Hospitalization, Other)
  Sender: FDA-Public Use
  Company Number: US-UNITED THERAPEUTICS-UNT-2017-006712

PATIENT
  Age: 56 Year
  Sex: Female
  Weight: 51.7 kg

DRUGS (4)
  1. REMODULIN [Suspect]
     Active Substance: TREPROSTINIL
     Dosage: 0.105 ?G/KG, CONTINUING
     Route: 041
     Dates: start: 20150409
  2. REMODULIN [Suspect]
     Active Substance: TREPROSTINIL
     Indication: PULMONARY HYPERTENSION
     Dosage: 0.110 ?G/KG, CONTINUING
     Route: 041
     Dates: start: 20090126
  3. ADCIRCA [Concomitant]
     Active Substance: TADALAFIL
     Indication: PRODUCT USED FOR UNKNOWN INDICATION
  4. LETAIRIS [Concomitant]
     Active Substance: AMBRISENTAN
     Indication: PRODUCT USED FOR UNKNOWN INDICATION

REACTIONS (8)
  - Asthma [Unknown]
  - Bacterial infection [Unknown]
  - Fungal infection [Not Recovered/Not Resolved]
  - Eye pain [Unknown]
  - Lung infection [Not Recovered/Not Resolved]
  - Pulmonary arterial hypertension [Unknown]
  - Epistaxis [Unknown]
  - Swelling face [Unknown]

NARRATIVE: CASE EVENT DATE: 201705
